APPROVED DRUG PRODUCT: RADIOGARDASE (PRUSSIAN BLUE)
Active Ingredient: FERRIC HEXACYANOFERRATE(II)
Strength: 500MG
Dosage Form/Route: CAPSULE;ORAL
Application: N021626 | Product #001
Applicant: HEYL CHEMISCH PHARMAZEUTISHE FABRIK
Approved: Oct 2, 2003 | RLD: Yes | RS: Yes | Type: RX